FAERS Safety Report 8206573-5 (Version None)
Quarter: 2012Q1

REPORT INFORMATION
  Report Type: 
  Country: None (occurrence: None)
  Receive Date: 20120313
  Receipt Date: 20120309
  Transmission Date: 20120608
  Serious: Yes (Death, Other)
  Sender: FDA-Public Use
  Company Number: US-AMGEN-USASP2011002242

PATIENT
  Age: 89 Year
  Sex: Female

DRUGS (10)
  1. METOPROLOL SUCCINATE [Concomitant]
  2. SYNTHROID [Concomitant]
  3. PROLIA [Suspect]
     Indication: OSTEOPOROSIS POSTMENOPAUSAL
     Dosage: UNK UNK, Q6MO
     Dates: start: 20101228
  4. VITAMIN D [Concomitant]
  5. WARFARIN SODIUM [Concomitant]
  6. VITAMINS WITH MINERALS [Concomitant]
  7. LANOXIN [Concomitant]
  8. FUROSEMIDE [Concomitant]
  9. MAGNESIUM [Concomitant]
  10. POTASSIUM [Concomitant]

REACTIONS (13)
  - SOMNOLENCE [None]
  - BODY TEMPERATURE DECREASED [None]
  - RASH [None]
  - RASH PAPULAR [None]
  - FATIGUE [None]
  - DEATH [None]
  - CHILLS [None]
  - DIARRHOEA [None]
  - VISION BLURRED [None]
  - LACRIMATION INCREASED [None]
  - LOCALISED INFECTION [None]
  - POLLAKIURIA [None]
  - URINE COLOUR ABNORMAL [None]
